FAERS Safety Report 22084608 (Version 6)
Quarter: 2023Q2

REPORT INFORMATION
  Report Type: Spontaneous
  Country: US (occurrence: US)
  Receive Date: 20230310
  Receipt Date: 20230614
  Transmission Date: 20230721
  Serious: No
  Sender: FDA-Public Use
  Company Number: US-PFIZER INC-PV202300011606

PATIENT
  Age: 89 Year
  Sex: Female
  Weight: 73.469 kg

DRUGS (3)
  1. IBRANCE [Suspect]
     Active Substance: PALBOCICLIB
     Indication: Breast cancer female
     Dosage: 75 MG, CYCLIC (TAKE 1 BY MOUTH 14 DAYS ON AND 14 DAYS OFF)
     Route: 048
  2. IBRANCE [Suspect]
     Active Substance: PALBOCICLIB
     Dosage: TAKE ONE (1) TABLET BY MOUTH ONCE DAILY WITH OR WITHOUT FOOD FOR 21 DAYS ON AND 7 DAYS OFF
     Route: 048
     Dates: start: 202211
  3. IBRANCE [Suspect]
     Active Substance: PALBOCICLIB
     Dosage: UNK, 1X/DAY
     Dates: start: 202212, end: 202302

REACTIONS (2)
  - Neoplasm progression [Unknown]
  - Off label use [Unknown]
